FAERS Safety Report 9204370 (Version 1)
Quarter: 2013Q2

REPORT INFORMATION
  Report Type: Spontaneous
  Country: MX (occurrence: MX)
  Receive Date: 20130402
  Receipt Date: 20130402
  Transmission Date: 20140414
  Serious: Yes (Hospitalization, Other)
  Sender: FDA-Public Use
  Company Number: MX-ROCHE-1209247

PATIENT
  Age: 56 Year
  Sex: Female

DRUGS (2)
  1. LUCENTIS [Suspect]
     Indication: DIABETIC RETINAL OEDEMA
     Route: 050
     Dates: start: 2012
  2. LUCENTIS [Suspect]
     Route: 050
     Dates: start: 20121217, end: 20121217

REACTIONS (3)
  - Eye pain [Unknown]
  - Cerebrovascular accident [Unknown]
  - Hypertensive crisis [Unknown]
